FAERS Safety Report 7138057 (Version 9)
Quarter: 2012Q4

REPORT INFORMATION
  Report Type: Report from Study
  Country: JP (occurrence: JP)
  Receive Date: 20091002
  Receipt Date: 20121219
  Transmission Date: 20130627
  Serious: Yes (Other)
  Sender: FDA-Public Use
  Company Number: PHHY2009JP41692

PATIENT
  Age: 14 Year
  Sex: Male
  Weight: 46 kg

DRUGS (12)
  1. AMN107 [Suspect]
     Indication: CHRONIC MYELOID LEUKAEMIA
     Dosage: 200 mg, daily
     Route: 048
     Dates: start: 20090811, end: 20091112
  2. AMN107 [Suspect]
     Dosage: 400 mg/day
     Route: 048
     Dates: start: 20091113, end: 20100329
  3. AMN107 [Suspect]
     Dosage: 600 mg/day
     Route: 048
     Dates: start: 20100330, end: 20100811
  4. AMN107 [Suspect]
     Dosage: 800 mg/day
     Route: 048
     Dates: start: 20100812, end: 20100819
  5. AMN107 [Suspect]
     Dosage: 600 mg, daily
     Route: 048
     Dates: start: 20100820, end: 20100914
  6. AMN107 [Suspect]
     Dosage: 400 mg/day
     Route: 048
     Dates: start: 20101001, end: 20110113
  7. AMN107 [Suspect]
     Dosage: 200 mg/day
     Route: 048
     Dates: start: 20110114
  8. LIDOMEX [Concomitant]
     Dosage: 10 g, UNK
     Route: 061
     Dates: start: 20091027
  9. ALLEGRA [Concomitant]
     Indication: PRURITUS
     Dosage: 60 mg, UNK
     Route: 048
     Dates: start: 20100414, end: 20111101
  10. ALLELOCK [Concomitant]
     Dosage: 10 mg, UNK
     Route: 048
     Dates: start: 20101102, end: 20111213
  11. EBASTEL [Concomitant]
     Dosage: 10 mg, UNK
     Route: 048
     Dates: start: 20110318
  12. ZYRTEC [Concomitant]
     Indication: PRURITUS
     Dosage: 1 DF, UNK
     Route: 048
     Dates: start: 20100126, end: 20100413

REACTIONS (5)
  - Electrocardiogram QT prolonged [Recovered/Resolved]
  - Jaundice [Recovering/Resolving]
  - Hepatic function abnormal [Recovered/Resolved]
  - Dry skin [Recovered/Resolved]
  - Eosinophilia [Recovered/Resolved]
